FAERS Safety Report 7819051-X (Version None)
Quarter: 2011Q4

REPORT INFORMATION
  Report Type: 
  Country: None (occurrence: None)
  Receive Date: 20111018
  Receipt Date: 20111012
  Transmission Date: 20120403
  Serious: No
  Sender: FDA-Public Use
  Company Number: US-B.I. PHARMACEUTICALS,INC./RIDGEFIELD-2011-BP-24356BP

PATIENT
  Age: 57 Year
  Sex: Male

DRUGS (3)
  1. VICTOZA [Suspect]
  2. HYDROCHLOROTHIAZIDE [Suspect]
  3. TWYNSTA [Suspect]

REACTIONS (2)
  - DECREASED APPETITE [None]
  - HYPOTENSION [None]
